FAERS Safety Report 8052777-4 (Version None)
Quarter: 2012Q1

REPORT INFORMATION
  Report Type: 
  Country: None (occurrence: None)
  Receive Date: 20120118
  Receipt Date: 20120111
  Transmission Date: 20120608
  Serious: Yes (Hospitalization)
  Sender: FDA-Public Use
  Company Number: PHEH2012US001216

PATIENT
  Sex: Female

DRUGS (6)
  1. LEVOTHYROXINE SODIUM [Concomitant]
  2. LIPITOR [Concomitant]
  3. DIOVAN HCT [Suspect]
     Dosage: 1 DF,(320 MG VAL/25 MG HCT)
  4. BLOOD PRESSURE PILLS [Concomitant]
  5. DRUG USED IN DIABETES [Concomitant]
  6. UNKNOWN BLOOD PRESSURE MEDICATION [Suspect]

REACTIONS (3)
  - COLITIS [None]
  - DIARRHOEA [None]
  - DEHYDRATION [None]
